FAERS Safety Report 7289479-8 (Version None)
Quarter: 2011Q1

REPORT INFORMATION
  Report Type: 
  Country: None (occurrence: None)
  Receive Date: 20110211
  Receipt Date: 20110131
  Transmission Date: 20110831
  Serious: Yes (Hospitalization)
  Sender: FDA-Public Use
  Company Number: CO-GENENTECH-313277

PATIENT
  Age: 61 Year
  Sex: Male

DRUGS (3)
  1. TRAMADOL HCL [Concomitant]
     Indication: PAIN
     Dosage: 10 MG, QID
     Route: 048
     Dates: start: 20100604
  2. MABTHERA [Suspect]
     Indication: NON-HODGKIN'S LYMPHOMA
     Dosage: 600 MG, Q21D
     Route: 042
     Dates: start: 20100604
  3. MORPHINE [Concomitant]
     Indication: PAIN
     Dosage: 5 MG, UNK
     Route: 042
     Dates: start: 20100604

REACTIONS (1)
  - DISEASE PROGRESSION [None]
